FAERS Safety Report 5005131-3 (Version None)
Quarter: 2006Q2

REPORT INFORMATION
  Report Type: 
  Country: None (occurrence: None)
  Receive Date: 20060518
  Receipt Date: 20060511
  Transmission Date: 20061013
  Serious: Yes (Other)
  Sender: FDA-Public Use
  Company Number: PHNU2006DE01939

PATIENT
  Age: 16 Year
  Sex: Female

DRUGS (2)
  1. RITALIN [Suspect]
     Dosage: ^AS NEEDED^
     Route: 048
  2. ALCOHOL [Concomitant]
     Dosage: UNKNOWN
     Route: 048

REACTIONS (1)
  - ALCOHOL USE [None]
